FAERS Safety Report 24417210 (Version 1)
Quarter: 2024Q4

REPORT INFORMATION
  Report Type: Report from Study
  Country: CN (occurrence: CN)
  Receive Date: 20241009
  Receipt Date: 20241009
  Transmission Date: 20250115
  Serious: Yes (Death, Life-Threatening, Other)
  Sender: JOHNSON AND JOHNSON
  Company Number: CN-JNJFOC-20241008078

PATIENT

DRUGS (4)
  1. DARZALEX [Suspect]
     Active Substance: DARATUMUMAB
     Indication: Plasma cell myeloma
     Route: 065
  2. ELOTUZUMAB [Suspect]
     Active Substance: ELOTUZUMAB
     Indication: Plasma cell myeloma
     Route: 065
  3. ISATUXIMAB [Suspect]
     Active Substance: ISATUXIMAB
     Indication: Plasma cell myeloma
     Route: 065
  4. BELANTAMAB [Suspect]
     Active Substance: BELANTAMAB
     Indication: Plasma cell myeloma
     Route: 065

REACTIONS (15)
  - Cardiomyopathy [Fatal]
  - Arrhythmia [Fatal]
  - Thrombosis [Fatal]
  - Pulmonary hypertension [Fatal]
  - Cardiac failure [Fatal]
  - Myopericarditis [Fatal]
  - Torsade de pointes [Fatal]
  - Myocardial ischaemia [Unknown]
  - Atrial fibrillation [Unknown]
  - Deep vein thrombosis [Unknown]
  - Hypoxia [Unknown]
  - Pulmonary embolism [Unknown]
  - Atrial flutter [Unknown]
  - Hypertension [Unknown]
  - Oedema peripheral [Unknown]
